FAERS Safety Report 4391264-1 (Version None)
Quarter: 2004Q2

REPORT INFORMATION
  Report Type: 
  Country: None (occurrence: None)
  Receive Date: 20040621
  Receipt Date: 20040205
  Transmission Date: 20050107
  Serious: Yes (Death, Hospitalization, Other)
  Sender: FDA-Public Use
  Company Number: USA-2003-0003968

PATIENT
  Age: 48 Year
  Sex: Male
  Weight: 68 kg

DRUGS (4)
  1. OXYCONTIN [Suspect]
     Indication: PAIN
     Dosage: 20 MG, ORAL
     Route: 048
  2. CARBON MONOXIDE (CARBON MONOXIDE) [Suspect]
  3. FENTANYL [Suspect]
     Indication: PAIN
     Dosage: 50 MCG, SEE TEXT, INTRADERMAL
     Route: 023
  4. BENZODIAZEPINES [Suspect]

REACTIONS (6)
  - ACCIDENTAL OVERDOSE [None]
  - CARDIAC FAILURE [None]
  - CHEST PAIN [None]
  - DRUG ABUSER [None]
  - DRUG DEPENDENCE [None]
  - MULTIPLE DRUG OVERDOSE [None]
